FAERS Safety Report 4472471-6 (Version None)
Quarter: 2004Q4

REPORT INFORMATION
  Report Type: 
  Country: None (occurrence: None)
  Receive Date: 20041010
  Receipt Date: 20040930
  Transmission Date: 20050328
  Serious: Yes (Life-Threatening)
  Sender: FDA-Public Use
  Company Number: 209125

PATIENT
  Age: 35 Year
  Sex: Female
  Weight: 70.7 kg

DRUGS (8)
  1. XOLAIR [Suspect]
     Indication: ASTHMA
     Dosage: 225 MG, Q2W, INTRAMUSCULAR
     Route: 030
     Dates: start: 20040505, end: 20040630
  2. ADVAIR (FLUTICASONE PROPIONATE, SALMETEROL XINAFOATE) [Concomitant]
  3. SINGULAIR [Concomitant]
  4. PROTONIX [Concomitant]
  5. ALLEGRA [Concomitant]
  6. ZOLOFT [Concomitant]
  7. PROGESTIN (PROGESTINS NOS) [Concomitant]
  8. RHINOCORT AQUA (BUDESONIDE) [Concomitant]

REACTIONS (6)
  - ARTHRALGIA [None]
  - ASTHENIA [None]
  - DIZZINESS [None]
  - HEADACHE [None]
  - INTRACRANIAL PRESSURE INCREASED [None]
  - MIGRAINE [None]
